FAERS Safety Report 16022331 (Version 2)
Quarter: 2019Q1

REPORT INFORMATION
  Report Type: Spontaneous
  Country: DE (occurrence: DE)
  Receive Date: 20190301
  Receipt Date: 20190312
  Transmission Date: 20190418
  Serious: Yes (Life-Threatening, Hospitalization, Other)
  Sender: FDA-Public Use
  Company Number: DE-BRISTOL-MYERS SQUIBB COMPANY-BMS-2019-020499

PATIENT
  Age: 53 Year
  Sex: Male

DRUGS (1)
  1. IPILIMUMAB [Suspect]
     Active Substance: IPILIMUMAB
     Indication: MALIGNANT MELANOMA
     Dosage: 3 MG/KG, Q3WK
     Route: 065
     Dates: start: 20150402

REACTIONS (17)
  - Gastrointestinal disorder [Unknown]
  - Hypothermia [Unknown]
  - Nasopharyngitis [Recovering/Resolving]
  - Headache [Unknown]
  - Asthenia [Unknown]
  - Infection [Unknown]
  - Hypogonadism [Unknown]
  - General physical health deterioration [Unknown]
  - Hyponatraemia [Unknown]
  - Secondary hypothyroidism [Unknown]
  - Adrenocortical insufficiency acute [Unknown]
  - Diarrhoea [Unknown]
  - Hypopituitarism [Unknown]
  - Fatigue [Unknown]
  - Weight decreased [Unknown]
  - Eosinophilia [Unknown]
  - Hypotension [Unknown]

NARRATIVE: CASE EVENT DATE: 2015
